FAERS Safety Report 7294167-8 (Version None)
Quarter: 2011Q1

REPORT INFORMATION
  Report Type: 
  Country: None (occurrence: None)
  Receive Date: 20110215
  Receipt Date: 20110211
  Transmission Date: 20110831
  Serious: Yes (Hospitalization, Other)
  Sender: FDA-Public Use
  Company Number: US-PFIZER INC-2010126719

PATIENT
  Sex: Female

DRUGS (9)
  1. CHANTIX [Suspect]
     Dosage: 0.5 MG, UNK
  2. SOMA [Concomitant]
     Indication: PAIN IN EXTREMITY
     Dosage: UNK
     Dates: start: 19990101, end: 20100301
  3. SOMA [Concomitant]
     Indication: BACK PAIN
  4. CHANTIX [Suspect]
     Dosage: 1 MG, UNK
  5. XANAX [Concomitant]
     Indication: DEPRESSION
     Dosage: UNK
     Dates: start: 19960101
  6. OXYCODONE HCL AND ACETAMINOPHEN [Concomitant]
     Indication: PAIN IN EXTREMITY
     Dosage: UNK
     Dates: start: 19990101
  7. OXYCODONE HCL AND ACETAMINOPHEN [Concomitant]
     Indication: BACK PAIN
  8. AMBIEN [Concomitant]
     Indication: INSOMNIA
     Dosage: UNK
     Dates: start: 20040101
  9. CHANTIX [Suspect]
     Indication: SMOKING CESSATION THERAPY
     Dosage: UNK
     Dates: start: 20070228, end: 20070401

REACTIONS (7)
  - EMOTIONAL DISTRESS [None]
  - AGGRESSION [None]
  - ABNORMAL BEHAVIOUR [None]
  - SUICIDE ATTEMPT [None]
  - DEPRESSION [None]
  - MENTAL DISORDER [None]
  - ANXIETY [None]
